FAERS Safety Report 4389249-4 (Version None)
Quarter: 2004Q2

REPORT INFORMATION
  Report Type: 
  Country: None (occurrence: None)
  Receive Date: 20040628
  Receipt Date: 20040617
  Transmission Date: 20050107
  Serious: Yes (Hospitalization)
  Sender: FDA-Public Use
  Company Number: 04P-028-0264129-00

PATIENT
  Sex: 0

DRUGS (5)
  1. DEPAKENE [Suspect]
     Dosage: PER ORAL
     Route: 048
  2. LORAZEPAM [Concomitant]
  3. CLONAZEPAM [Concomitant]
  4. FLUOXETINE [Concomitant]
  5. ETHANOL [Concomitant]

REACTIONS (6)
  - ACIDOSIS [None]
  - DEPRESSED LEVEL OF CONSCIOUSNESS [None]
  - GRAND MAL CONVULSION [None]
  - HAEMODIALYSIS [None]
  - HAEMODYNAMIC INSTABILITY [None]
  - OVERDOSE [None]
